FAERS Safety Report 8309634-5 (Version None)
Quarter: 2012Q2

REPORT INFORMATION
  Report Type: 
  Country: None (occurrence: None)
  Receive Date: 20120425
  Receipt Date: 20120413
  Transmission Date: 20120825
  Serious: Yes (Other)
  Sender: FDA-Public Use
  Company Number: US-JNJFOC-20120406698

PATIENT
  Age: 54 Year
  Sex: Female

DRUGS (1)
  1. REMICADE [Suspect]
     Indication: PSORIASIS
     Route: 042
     Dates: start: 20120401, end: 20120401

REACTIONS (5)
  - HYPERSENSITIVITY [None]
  - BLOOD PRESSURE DECREASED [None]
  - FLUSHING [None]
  - MUSCLE TIGHTNESS [None]
  - MUSCLE SPASMS [None]
